FAERS Safety Report 24670696 (Version 2)
Quarter: 2024Q4

REPORT INFORMATION
  Report Type: Report from Study
  Country: US (occurrence: US)
  Receive Date: 20241127
  Receipt Date: 20241212
  Transmission Date: 20250115
  Serious: Yes (Hospitalization)
  Sender: ABBVIE
  Company Number: US-ABBVIE-6013017

PATIENT
  Age: 68 Year
  Sex: Male

DRUGS (2)
  1. RINVOQ [Suspect]
     Active Substance: UPADACITINIB
     Indication: Crohn^s disease
     Dosage: END DATE: 2024
     Route: 048
     Dates: start: 20240827
  2. IRON [Concomitant]
     Active Substance: IRON
     Indication: Anaemia
     Dosage: INFUSIONS

REACTIONS (6)
  - Urinary tract infection [Recovered/Resolved]
  - Drug ineffective [Unknown]
  - Anaemia [Unknown]
  - Crohn^s disease [Recovered/Resolved]
  - Acne [Unknown]
  - Bursitis [Not Recovered/Not Resolved]

NARRATIVE: CASE EVENT DATE: 20240910
